FAERS Safety Report 5959945-3 (Version None)
Quarter: 2008Q4

REPORT INFORMATION
  Report Type: 
  Country: None (occurrence: None)
  Receive Date: 20081119
  Receipt Date: 20081119
  Transmission Date: 20090506
  Serious: Yes (Disabling)
  Sender: FDA-Public Use
  Company Number: None

PATIENT
  Age: 57 Year
  Sex: Female

DRUGS (16)
  1. AMIKACIN [Suspect]
     Indication: MYCOBACTERIAL INFECTION
     Dosage: 825MG IV Q M-W-F
     Route: 042
     Dates: start: 20071211, end: 20080702
  2. FEXOFENADINE [Concomitant]
  3. DOCUSATE [Concomitant]
  4. ONDANSETRON [Concomitant]
  5. RIFABUTIN [Concomitant]
  6. ETHAMBUTOL HYDROCHLORIDE [Concomitant]
  7. OFLOX [Concomitant]
  8. PANTOPRAZOLE SODIUM [Concomitant]
  9. LATANOPROST [Concomitant]
  10. AMITRIPTYLINE HCL [Concomitant]
  11. AZITHROMYCIN [Concomitant]
  12. PROMETHAZINE [Concomitant]
  13. PSYLLIUM [Concomitant]
  14. SENNA [Concomitant]
  15. RANITIDINE [Concomitant]
  16. TIMOLOL [Concomitant]

REACTIONS (1)
  - DEAFNESS UNILATERAL [None]
